FAERS Safety Report 6579917-8 (Version None)
Quarter: 2010Q1

REPORT INFORMATION
  Report Type: 
  Country: None (occurrence: None)
  Receive Date: 20100212
  Receipt Date: 20100202
  Transmission Date: 20100710
  Serious: Yes (Hospitalization)
  Sender: FDA-Public Use
  Company Number: US-JNJFOC-20100203805

PATIENT
  Sex: Female
  Weight: 8.29 kg

DRUGS (9)
  1. INFLIXIMAB [Suspect]
     Indication: INFLAMMATORY BOWEL DISEASE
     Route: 042
  2. METHOTREXATE [Suspect]
     Indication: DRUG USE FOR UNKNOWN INDICATION
  3. ANTIBIOTICS [Concomitant]
     Indication: INFLAMMATORY BOWEL DISEASE
  4. FOLATE [Concomitant]
  5. PREVACID [Concomitant]
  6. ELIDEL [Concomitant]
  7. CLOTRIMAZOLE [Concomitant]
  8. MICONAZOLE [Concomitant]
  9. TYLENOL-500 [Concomitant]

REACTIONS (1)
  - PNEUMONIA RESPIRATORY SYNCYTIAL VIRAL [None]
